FAERS Safety Report 23236786 (Version 3)
Quarter: 2023Q4

REPORT INFORMATION
  Report Type: Report from Study
  Country: CA (occurrence: None)
  Receive Date: 20231128
  Receipt Date: 20231221
  Transmission Date: 20240109
  Serious: Yes (Hospitalization, Other)
  Sender: FDA-Public Use
  Company Number: 2023A225821

PATIENT
  Age: 3272 Week
  Sex: Male

DRUGS (10)
  1. LYNPARZA [Suspect]
     Active Substance: OLAPARIB
     Indication: Hormone-refractory prostate cancer
     Route: 048
     Dates: start: 20230926, end: 20231006
  2. CALCIUM [Concomitant]
     Active Substance: CALCIUM
  3. DILAUDID [Concomitant]
     Active Substance: HYDROMORPHONE HYDROCHLORIDE
  4. NORVASC [Concomitant]
     Active Substance: AMLODIPINE BESYLATE
  5. PANTOPRAZOLE [Concomitant]
     Active Substance: PANTOPRAZOLE
  6. PAXIL [Concomitant]
     Active Substance: PAROXETINE HYDROCHLORIDE
  7. PREGABALIN [Concomitant]
     Active Substance: PREGABALIN
  8. ROSUVASTATIN [Concomitant]
     Active Substance: ROSUVASTATIN
  9. SEROQUEL [Concomitant]
     Active Substance: QUETIAPINE FUMARATE
  10. TAMSULOSIN [Concomitant]
     Active Substance: TAMSULOSIN

REACTIONS (11)
  - Staphylococcal sepsis [Recovered/Resolved]
  - Meningitis cryptococcal [Recovering/Resolving]
  - Speech disorder [Unknown]
  - Confusional state [Unknown]
  - Metastases to bone [Unknown]
  - Cancer pain [Not Recovered/Not Resolved]
  - Malignant neoplasm progression [Unknown]
  - Neutropenia [Recovered/Resolved]
  - Headache [Unknown]
  - Thrombosis [Recovered/Resolved]
  - Abdominal pain [Unknown]

NARRATIVE: CASE EVENT DATE: 20230927
